FAERS Safety Report 10195014 (Version 1)
Quarter: 2014Q2

REPORT INFORMATION
  Report Type: Report from Study
  Country: ZA (occurrence: ZA)
  Receive Date: 20140526
  Receipt Date: 20140526
  Transmission Date: 20141212
  Serious: Yes (Hospitalization)
  Sender: FDA-Public Use
  Company Number: PHHY2014ZA062460

PATIENT
  Age: 82 Year
  Sex: Female

DRUGS (12)
  1. CO-DIOVAN [Suspect]
     Indication: HYPERTENSION
     Dosage: UNK UKN, UNK
     Dates: start: 201108
  2. CO-TAREG [Suspect]
     Indication: HYPERTENSION
     Dosage: UNK UKN, UNK
     Dates: start: 201202
  3. DIOVAN [Suspect]
     Dosage: 40 MG, UNK
     Dates: start: 201205
  4. DIOVAN [Suspect]
     Dosage: 80 UNK, UNK
     Dates: start: 201206
  5. TAREG [Suspect]
     Dosage: 80 MG, UNK
     Dates: start: 201212
  6. TEGRETOL [Suspect]
     Dosage: UNK UKN, UNK
     Dates: start: 201212
  7. LEXAMIL [Concomitant]
     Indication: MAJOR DEPRESSION
  8. ASACOL [Concomitant]
     Indication: COLITIS ULCERATIVE
  9. ALTOSEC//OMEPRAZOLE [Concomitant]
     Indication: DUODENAL ULCER
  10. VIT D [Concomitant]
  11. SMECTA//DIOSMECTITE [Concomitant]
     Indication: DIARRHOEA
  12. QUESTRAN [Concomitant]
     Indication: BLOOD CHOLESTEROL ABNORMAL

REACTIONS (5)
  - Fall [Recovered/Resolved]
  - Ankle fracture [Recovered/Resolved]
  - Syncope [Recovered/Resolved]
  - Influenza like illness [Recovered/Resolved]
  - Conjunctivitis [Recovered/Resolved]
